FAERS Safety Report 8472942-1 (Version None)
Quarter: 2012Q2

REPORT INFORMATION
  Report Type: 
  Country: None (occurrence: None)
  Receive Date: 20120627
  Receipt Date: 20120617
  Transmission Date: 20120825
  Serious: Yes (Death, Hospitalization)
  Sender: FDA-Public Use
  Company Number: TR-CELGENEUS-161-21880-12053154

PATIENT
  Age: 62 Year
  Sex: Female
  Weight: 60 kg

DRUGS (6)
  1. ACETAMINOPHEN [Concomitant]
     Route: 065
  2. DEXAMETHASONE [Concomitant]
     Indication: MULTIPLE MYELOMA
     Route: 065
     Dates: start: 20120301, end: 20120524
  3. SEROQUEL [Concomitant]
     Indication: BIPOLAR DISORDER
     Dosage: 25 MILLIGRAM
     Route: 065
  4. REVLIMID [Suspect]
     Indication: MULTIPLE MYELOMA
     Dosage: 10 MILLIGRAM
     Route: 048
     Dates: start: 20120301, end: 20120524
  5. ESCITALOPRAM [Concomitant]
     Indication: BIPOLAR DISORDER
     Dosage: 10 MILLIGRAM
     Route: 065
  6. TRAMADOL HCL [Concomitant]
     Route: 065

REACTIONS (1)
  - SUBARACHNOID HAEMORRHAGE [None]
